FAERS Safety Report 5322089-8 (Version None)
Quarter: 2007Q2

REPORT INFORMATION
  Report Type: 
  Country: None (occurrence: None)
  Receive Date: 20070511
  Receipt Date: 20070503
  Transmission Date: 20071010
  Serious: Yes (Death)
  Sender: FDA-Public Use
  Company Number: ES-JNJFOC-20070501332

PATIENT
  Age: 64 Year
  Sex: Female

DRUGS (1)
  1. REMICADE [Suspect]
     Indication: MUSCULOSKELETAL PAIN
     Route: 042

REACTIONS (1)
  - RESPIRATORY FAILURE [None]
